FAERS Safety Report 13166759 (Version 1)
Quarter: 2017Q1

REPORT INFORMATION
  Report Type: Spontaneous
  Country: US (occurrence: US)
  Receive Date: 20170131
  Receipt Date: 20170131
  Transmission Date: 20170428
  Serious: Yes (Hospitalization, Other)
  Sender: FDA-Public Use
  Company Number: US-BAXTER-2017BAX003247

PATIENT
  Age: 38 Year
  Sex: Male

DRUGS (44)
  1. HERCEPTIN [Suspect]
     Active Substance: TRASTUZUMAB
     Route: 065
     Dates: end: 20160126
  2. LETROZOLE. [Suspect]
     Active Substance: LETROZOLE
     Indication: BREAST CANCER STAGE IV
     Route: 065
     Dates: end: 20160126
  3. TYLENOL [Concomitant]
     Active Substance: ACETAMINOPHEN
     Indication: PAIN
     Dosage: AS NEEDED
     Route: 048
  4. CARAFATE [Concomitant]
     Active Substance: SUCRALFATE
     Indication: PRODUCT USED FOR UNKNOWN INDICATION
     Route: 048
  5. CYCLOPHOSPHAMIDE FOR INJECTION, USP [Suspect]
     Active Substance: CYCLOPHOSPHAMIDE
     Indication: BREAST CANCER STAGE IV
  6. TAXOTERE [Suspect]
     Active Substance: DOCETAXEL
     Indication: BREAST CANCER MALE
     Dosage: 7 CYCLES
     Route: 065
     Dates: start: 201505, end: 201510
  7. HERCEPTIN [Suspect]
     Active Substance: TRASTUZUMAB
     Dosage: 3 CYCLES
     Route: 042
     Dates: start: 20160214
  8. PERJETA [Suspect]
     Active Substance: PERTUZUMAB
     Indication: BREAST CANCER STAGE IV
     Route: 065
     Dates: end: 20160126
  9. KADCYLA [Suspect]
     Active Substance: ADO-TRASTUZUMAB EMTANSINE
     Indication: BREAST CANCER STAGE IV
  10. ABRAXANE [Suspect]
     Active Substance: PACLITAXEL
     Indication: BREAST CANCER STAGE IV
     Dosage: PRIOR TO LAST CYCLE
     Route: 065
     Dates: start: 20160724
  11. FASLODEX [Suspect]
     Active Substance: FULVESTRANT
     Indication: BREAST CANCER MALE
     Route: 030
     Dates: start: 20161008
  12. AUGMENTIN [Suspect]
     Active Substance: AMOXICILLIN\CLAVULANATE POTASSIUM
     Indication: BREAST CANCER STAGE IV
  13. ZOFRAN [Concomitant]
     Active Substance: ONDANSETRON HYDROCHLORIDE
     Indication: NAUSEA
     Dosage: 1-2 TABLETS AS NEEDED
     Route: 048
  14. SENOKOT [Concomitant]
     Active Substance: SENNOSIDES
     Indication: PRODUCT USED FOR UNKNOWN INDICATION
     Dosage: 2 TABLETS
     Route: 048
  15. OXACILLIN [Concomitant]
     Active Substance: OXACILLIN SODIUM
     Indication: STAPHYLOCOCCAL BACTERAEMIA
  16. TAXOTERE [Suspect]
     Active Substance: DOCETAXEL
     Indication: BREAST CANCER STAGE IV
     Route: 065
     Dates: start: 20160204
  17. PARAPLATIN [Suspect]
     Active Substance: CARBOPLATIN
     Dosage: 300 MG; DAY 1 CYCLE 6
     Route: 042
     Dates: start: 20160724
  18. ABRAXANE [Suspect]
     Active Substance: PACLITAXEL
     Indication: BREAST CANCER MALE
     Dosage: CYCLE 1 DAY 1
     Route: 065
     Dates: start: 20160602
  19. LETROZOLE. [Suspect]
     Active Substance: LETROZOLE
     Indication: BREAST CANCER MALE
     Route: 065
     Dates: start: 20151208, end: 20160113
  20. DAPTOMYCIN. [Suspect]
     Active Substance: DAPTOMYCIN
     Indication: BREAST CANCER MALE
     Route: 042
     Dates: start: 20160430, end: 20160528
  21. LACTULOSE. [Concomitant]
     Active Substance: LACTULOSE
     Indication: CONSTIPATION
     Dosage: 10 G; AS NEEDED
     Route: 048
  22. PARAPLATIN [Suspect]
     Active Substance: CARBOPLATIN
     Indication: BREAST CANCER MALE
     Dosage: CYCLE 1 DAY 1
     Route: 042
     Dates: start: 20160602
  23. ZOMETA [Suspect]
     Active Substance: ZOLEDRONIC ACID
     Indication: BREAST CANCER MALE
     Route: 042
     Dates: start: 20161008
  24. DAPTOMYCIN. [Suspect]
     Active Substance: DAPTOMYCIN
     Indication: BREAST CANCER STAGE IV
     Route: 042
     Dates: end: 20160617
  25. ATIVAN [Concomitant]
     Active Substance: LORAZEPAM
     Indication: ANXIETY
     Route: 048
  26. OXACILLIN [Concomitant]
     Active Substance: OXACILLIN SODIUM
     Indication: CHEST WALL ABSCESS
     Route: 042
  27. CYCLOPHOSPHAMIDE FOR INJECTION, USP [Suspect]
     Active Substance: CYCLOPHOSPHAMIDE
     Indication: BREAST CANCER MALE
     Dosage: 7 CYCLES
     Route: 065
     Dates: start: 201505, end: 201510
  28. PARAPLATIN [Suspect]
     Active Substance: CARBOPLATIN
     Indication: BREAST CANCER STAGE IV
     Dosage: 100 MG/M2; DAY 1 CYCLE 3
     Route: 042
     Dates: start: 20160625
  29. FASLODEX [Suspect]
     Active Substance: FULVESTRANT
     Indication: BREAST CANCER STAGE IV
     Route: 030
     Dates: start: 20161021
  30. COMPAZINE [Concomitant]
     Active Substance: PROCHLORPERAZINE MALEATE
     Indication: VOMITING
  31. HERCEPTIN [Suspect]
     Active Substance: TRASTUZUMAB
     Indication: BREAST CANCER MALE
     Route: 065
     Dates: start: 201505, end: 201510
  32. HERCEPTIN [Suspect]
     Active Substance: TRASTUZUMAB
     Indication: BREAST CANCER STAGE IV
     Route: 065
     Dates: start: 20151208, end: 20160113
  33. KADCYLA [Suspect]
     Active Substance: ADO-TRASTUZUMAB EMTANSINE
     Indication: BREAST CANCER MALE
     Dosage: C1, D1
     Route: 042
     Dates: start: 20160418
  34. PARAPLATIN [Suspect]
     Active Substance: CARBOPLATIN
     Dosage: DAY 1 CYCLE 4
     Route: 042
     Dates: start: 20160703
  35. PARAPLATIN [Suspect]
     Active Substance: CARBOPLATIN
     Dosage: 300 MG; DAY 1 CYCLE 8
     Route: 042
     Dates: start: 20160916
  36. ZOMETA [Suspect]
     Active Substance: ZOLEDRONIC ACID
     Indication: BREAST CANCER STAGE IV
     Route: 042
     Dates: start: 20161021
  37. TAXOTERE [Suspect]
     Active Substance: DOCETAXEL
     Dosage: 3 CYCLES
     Route: 042
     Dates: start: 20160214
  38. PERJETA [Suspect]
     Active Substance: PERTUZUMAB
     Indication: BREAST CANCER MALE
     Dosage: GIVEN FOR 5 WEEKS
     Route: 065
     Dates: start: 20151208, end: 20160113
  39. PERJETA [Suspect]
     Active Substance: PERTUZUMAB
     Dosage: 3 CYCLES
     Route: 042
     Dates: start: 20160214
  40. PARAPLATIN [Suspect]
     Active Substance: CARBOPLATIN
     Dosage: 300 MG (DAY1, CYCLE 5)
     Route: 042
     Dates: start: 20160715
  41. ABRAXANE [Suspect]
     Active Substance: PACLITAXEL
     Dosage: LAST CYCLE
     Route: 065
     Dates: start: 20160916
  42. AUGMENTIN [Suspect]
     Active Substance: AMOXICILLIN\CLAVULANATE POTASSIUM
     Indication: BREAST CANCER MALE
     Route: 048
     Dates: start: 20160528, end: 20160617
  43. COMPAZINE [Concomitant]
     Active Substance: PROCHLORPERAZINE MALEATE
     Indication: NAUSEA
     Dosage: AS NEEDED
     Route: 048
  44. TRIUMEQ [Concomitant]
     Active Substance: ABACAVIR SULFATE\DOLUTEGRAVIR SODIUM\LAMIVUDINE
     Indication: HIV INFECTION
     Route: 048

REACTIONS (18)
  - Fractured sacrum [Unknown]
  - Pathological fracture [Unknown]
  - Osteolysis [Unknown]
  - Acetabulum fracture [Unknown]
  - Enterococcus test positive [Unknown]
  - Chest pain [Unknown]
  - Constipation [Unknown]
  - Candida infection [Recovered/Resolved]
  - Staphylococcus test positive [Unknown]
  - Wound haemorrhage [Unknown]
  - Nocardia test positive [Unknown]
  - Pleural effusion [Unknown]
  - Spinal compression fracture [Unknown]
  - Pleural effusion [Unknown]
  - Haemoglobin decreased [Unknown]
  - Malaise [Unknown]
  - Disease progression [Unknown]
  - Dyspnoea exertional [Unknown]

NARRATIVE: CASE EVENT DATE: 20160105
